FAERS Safety Report 8947742 (Version 2)
Quarter: 2012Q4

REPORT INFORMATION
  Report Type: Spontaneous
  Country: US (occurrence: None)
  Receive Date: 20120814
  Receipt Date: 20120905
  Transmission Date: 20130627
  Serious: Yes (Death, Other)
  Sender: FDA-Public Use
  Company Number: 2012P1046010

PATIENT
  Age: 44 Year
  Sex: Female

DRUGS (17)
  1. ONDANSETRON [Suspect]
     Indication: NAUSEA
     Route: 042
     Dates: start: 20120619, end: 20120619
  2. ONDANSETRON [Suspect]
     Indication: VOMITING
     Route: 042
     Dates: start: 20120619, end: 20120619
  3. ONDANSETRON [Suspect]
     Indication: NAUSEA
     Route: 042
     Dates: start: 20120620, end: 20120620
  4. ONDANSETRON [Suspect]
     Indication: VOMITING
     Route: 042
     Dates: start: 20120620, end: 20120620
  5. ONDANSETRON [Suspect]
     Indication: NAUSEA
     Route: 042
     Dates: start: 20120620, end: 20120620
  6. ONDANSETRON [Suspect]
     Indication: VOMITING
     Route: 042
     Dates: start: 20120620, end: 20120620
  7. ONDANSETRON [Suspect]
     Indication: NAUSEA
     Route: 042
     Dates: start: 20120620, end: 20120620
  8. ONDANSETRON [Suspect]
     Indication: VOMITING
     Route: 042
     Dates: start: 20120620, end: 20120620
  9. PROTONIX [Concomitant]
  10. FLAGYL [Concomitant]
  11. DEPAKOTE [Concomitant]
  12. DOCUSATE [Concomitant]
  13. LAMICTAL [Concomitant]
  14. LEVOTHYROXINE [Concomitant]
  15. MULTIVITAMIN [Concomitant]
  16. SEROQUEL [Concomitant]
  17. SENNA [Concomitant]

REACTIONS (9)
  - Cardio-respiratory arrest [None]
  - Pallor [None]
  - Lethargy [None]
  - Vomiting [None]
  - Hypopnoea [None]
  - Multi-organ failure [None]
  - Sepsis [None]
  - Respiratory failure [None]
  - Aspiration [None]
